FAERS Safety Report 5263085-9 (Version None)
Quarter: 2007Q1

REPORT INFORMATION
  Report Type: 
  Country: None (occurrence: None)
  Receive Date: 20070312
  Receipt Date: 20070228
  Transmission Date: 20070707
  Serious: Yes (Other)
  Sender: FDA-Public Use
  Company Number: AU-PFIZER INC-2007002280

PATIENT
  Sex: Female
  Weight: 46 kg

DRUGS (8)
  1. LYRICA [Suspect]
     Indication: NEURITIS
     Route: 048
     Dates: start: 20070101, end: 20070102
  2. ACETYLSALICYLIC ACID SRT [Concomitant]
     Route: 048
  3. LIPITOR [Concomitant]
     Route: 048
  4. METOPROLOL SUCCINATE [Concomitant]
     Route: 048
  5. NORVASC [Concomitant]
     Route: 048
  6. TAMOXIFEN CITRATE [Concomitant]
     Route: 048
  7. ALL OTHER THERAPEUTIC PRODUCTS [Concomitant]
     Route: 048
  8. TRAMADOL HCL [Concomitant]

REACTIONS (4)
  - BONE PAIN [None]
  - MUSCLE SPASMS [None]
  - NECK PAIN [None]
  - NUCHAL RIGIDITY [None]
